FAERS Safety Report 9002271 (Version 1)
Quarter: 2013Q1

REPORT INFORMATION
  Report Type: Spontaneous
  Country: US (occurrence: US)
  Receive Date: 20130107
  Receipt Date: 20130107
  Transmission Date: 20140127
  Serious: Yes (Hospitalization)
  Sender: FDA-Public Use
  Company Number: US-PFIZER INC-2013002799

PATIENT
  Age: 58 Year
  Sex: Female

DRUGS (1)
  1. DEPO-MEDROL [Suspect]
     Dosage: 80 MG ONLY ONCE
     Dates: start: 20121224, end: 20121224

REACTIONS (4)
  - Local swelling [Unknown]
  - Dysstasia [Unknown]
  - Blood pressure decreased [Unknown]
  - Pharyngeal disorder [Unknown]
